FAERS Safety Report 9301145 (Version 1)
Quarter: 2013Q2

REPORT INFORMATION
  Report Type: Spontaneous
  Country: US (occurrence: US)
  Receive Date: 20130521
  Receipt Date: 20130521
  Transmission Date: 20140414
  Serious: Yes (Other)
  Sender: FDA-Public Use
  Company Number: US-BRISTOL-MYERS SQUIBB COMPANY-16961526

PATIENT
  Age: 75 Year
  Sex: Male

DRUGS (1)
  1. BARACLUDE TABS 0.5 MG [Suspect]
     Indication: HEPATITIS B
     Dosage: MFG:JAN 2012
     Dates: start: 201206

REACTIONS (1)
  - Viral load increased [Unknown]
